FAERS Safety Report 9954745 (Version 1)
Quarter: 2014Q1

REPORT INFORMATION
  Report Type: Report from Study
  Country: US (occurrence: US)
  Receive Date: 20140304
  Receipt Date: 20140304
  Transmission Date: 20141002
  Serious: No
  Sender: FDA-Public Use
  Company Number: US-ABBVIE-13P-163-1082294-00

PATIENT
  Age: 59 Year
  Sex: Female
  Weight: 124.85 kg

DRUGS (11)
  1. HUMIRA [Suspect]
     Indication: RHEUMATOID ARTHRITIS
     Route: 058
     Dates: start: 20130328
  2. ARAVA [Concomitant]
     Indication: RHEUMATOID ARTHRITIS
  3. BYSTOLIC [Concomitant]
     Indication: HYPERTENSION
  4. CALCIUM [Concomitant]
     Indication: PRODUCT USED FOR UNKNOWN INDICATION
  5. ESTROGEN [Concomitant]
     Indication: HORMONE LEVEL ABNORMAL
  6. METHOCARBAMOL [Concomitant]
     Indication: RHEUMATOID ARTHRITIS
  7. OXYCODONE [Concomitant]
     Indication: ARTHRALGIA
  8. PERCOCET [Concomitant]
     Indication: ARTHRITIS
  9. SAVELLA [Concomitant]
     Indication: FIBROMYALGIA
  10. TRAZODONE [Concomitant]
     Indication: FIBROMYALGIA
  11. NIACIN [Concomitant]
     Indication: PRODUCT USED FOR UNKNOWN INDICATION

REACTIONS (1)
  - Headache [Not Recovered/Not Resolved]
